FAERS Safety Report 21935348 (Version 1)
Quarter: 2023Q1

REPORT INFORMATION
  Report Type: Spontaneous
  Country: SG (occurrence: SG)
  Receive Date: 20230201
  Receipt Date: 20230201
  Transmission Date: 20230418
  Serious: Yes (Other)
  Sender: FDA-Public Use
  Company Number: SG-COLLEGIUM PHARMACEUTICAL, INC.-20230100090

PATIENT

DRUGS (1)
  1. ELYXYB [Suspect]
     Active Substance: CELECOXIB
     Indication: Product used for unknown indication
     Dosage: UNK, UNKNOWN
     Route: 065

REACTIONS (2)
  - Symmetrical drug-related intertriginous and flexural exanthema [Recovering/Resolving]
  - Accidental exposure to product [Recovering/Resolving]
